FAERS Safety Report 9442581 (Version 1)
Quarter: 2013Q3

REPORT INFORMATION
  Report Type: Spontaneous
  Country: TR (occurrence: TR)
  Receive Date: 20130806
  Receipt Date: 20130806
  Transmission Date: 20140515
  Serious: Yes (Other)
  Sender: FDA-Public Use
  Company Number: TR-ASTELLAS-2013EU006504

PATIENT
  Age: 54 Year
  Sex: Male

DRUGS (6)
  1. TACROLIMUS SYSTEMIC [Suspect]
     Dosage: 20 MG, UNKNOWN/D
     Route: 065
  2. PREDNISOLON                        /00016201/ [Concomitant]
     Dosage: 10 MG, UID/QD
     Route: 065
  3. MYCOPHENOLATE MOFETIL [Concomitant]
     Dosage: 2 G, UID/QD
     Route: 065
  4. INSULIN [Concomitant]
     Dosage: UNK
     Route: 065
  5. ENTECAVIR [Concomitant]
     Dosage: 0.5 MG, UID/QD
     Route: 065
  6. URSODEOXYCHOLIC ACID [Concomitant]
     Dosage: 1 G, UID/QD
     Route: 065

REACTIONS (3)
  - Herpes zoster [Unknown]
  - Myelitis transverse [Unknown]
  - Radiculitis [Unknown]
